FAERS Safety Report 23853630 (Version 1)
Quarter: 2024Q2

REPORT INFORMATION
  Report Type: Spontaneous
  Country: IT (occurrence: IT)
  Receive Date: 20240514
  Receipt Date: 20240514
  Transmission Date: 20240716
  Serious: Yes (Other)
  Sender: FDA-Public Use
  Company Number: IT-HALEON-2166621

PATIENT
  Age: 35 Year
  Sex: Female

DRUGS (4)
  1. DIAZEPAM [Suspect]
     Active Substance: DIAZEPAM
     Indication: Panic attack
     Dosage: 1-2 MG/DAY
     Route: 065
  2. LORAZEPAM [Suspect]
     Active Substance: LORAZEPAM
     Indication: Panic attack
     Dosage: 10.000DROP (1/12 MILLILITRE) QD
     Route: 065
  3. ACETAMINOPHEN [Suspect]
     Active Substance: ACETAMINOPHEN
     Indication: Headache
     Dosage: 2-4 G/DAY. 1-2 G OCCASIONALLY IN THE SECOND AND THIRD TRIMESTER
     Route: 065
  4. SERTRALINE [Suspect]
     Active Substance: SERTRALINE HYDROCHLORIDE
     Indication: Panic attack
     Dosage: 25.000MG QD
     Route: 065

REACTIONS (10)
  - Pulmonary valve incompetence [Unknown]
  - Pulmonary hypertension [Unknown]
  - Hypoxia [Unknown]
  - Tricuspid valve incompetence [Unknown]
  - Ductus arteriosus premature closure [Unknown]
  - Ventricular compliance decreased [Unknown]
  - Premature baby [Unknown]
  - Cardiomegaly [Unknown]
  - Cardiac disorder [Unknown]
  - Exposure during pregnancy [Unknown]
